FAERS Safety Report 7176374-8 (Version None)
Quarter: 2010Q4

REPORT INFORMATION
  Report Type: 
  Country: None (occurrence: None)
  Receive Date: 20101220
  Receipt Date: 20101008
  Transmission Date: 20110411
  Serious: No
  Sender: FDA-Public Use
  Company Number: US-TYCO HEALTHCARE/MALLINCKRODT-T201002043

PATIENT
  Sex: Male

DRUGS (4)
  1. OPTIMARK [Suspect]
     Indication: NUCLEAR MAGNETIC RESONANCE IMAGING BRAIN
     Dosage: 18 ML, SINGLE
     Route: 042
     Dates: start: 20100831, end: 20100831
  2. PROPANTHELINE BROMIDE [Concomitant]
     Indication: UROGENITAL DISORDER
  3. VALIUM [Concomitant]
     Indication: MUSCLE RELAXANT THERAPY
  4. IBUPROFEN [Concomitant]
     Indication: PAIN

REACTIONS (9)
  - ARTHRALGIA [None]
  - HEADACHE [None]
  - INJECTION SITE HAEMATOMA [None]
  - INJECTION SITE SWELLING [None]
  - MYDRIASIS [None]
  - NAUSEA [None]
  - SKIN STRIAE [None]
  - UPPER EXTREMITY MASS [None]
  - WEIGHT DECREASED [None]
